FAERS Safety Report 5132031-0 (Version None)
Quarter: 2006Q4

REPORT INFORMATION
  Report Type: 
  Country: None (occurrence: None)
  Receive Date: 20061017
  Receipt Date: 20061004
  Transmission Date: 20070319
  Serious: Yes (Other)
  Sender: FDA-Public Use
  Company Number: 2006100307

PATIENT
  Age: 72 Year
  Sex: Male
  Weight: 127.0072 kg

DRUGS (10)
  1. LYRICA [Suspect]
     Indication: NEUROPATHY
     Dosage: 400 MG (200 MG, 1 IN 1 D)
     Dates: start: 20051201
  2. ROSIGLITAZONE MALEATE [Concomitant]
  3. METFORMIN HCL [Concomitant]
  4. AGGRENOX [Concomitant]
  5. SIMVASTATIN [Concomitant]
  6. POTASSIUM (POTASSIUM) [Concomitant]
  7. LORATADINE [Concomitant]
  8. SAW PALMETO (SAW PALMETO) [Concomitant]
  9. VENLAFAXINE HCL [Concomitant]
  10. OXYCODONE HCL [Concomitant]

REACTIONS (13)
  - BALANCE DISORDER [None]
  - BLOOD PRESSURE DIASTOLIC DECREASED [None]
  - CONDITION AGGRAVATED [None]
  - DEEP VEIN THROMBOSIS [None]
  - DIZZINESS [None]
  - DRUG INEFFECTIVE [None]
  - MEMORY IMPAIRMENT [None]
  - OEDEMA PERIPHERAL [None]
  - PAIN [None]
  - PHARMACEUTICAL PRODUCT COMPLAINT [None]
  - SOMNOLENCE [None]
  - SPEECH DISORDER [None]
  - TREATMENT NONCOMPLIANCE [None]
